FAERS Safety Report 23497280 (Version 3)
Quarter: 2025Q3

REPORT INFORMATION
  Report Type: Spontaneous
  Country: US (occurrence: US)
  Receive Date: 20240207
  Receipt Date: 20250924
  Transmission Date: 20251020
  Serious: No
  Sender: ROCHE
  Company Number: US-ROCHE-3426620

PATIENT
  Sex: Female

DRUGS (4)
  1. XOLAIR [Suspect]
     Active Substance: OMALIZUMAB
     Indication: Asthma
     Dosage: STRENGTH: 150MG/ML
     Route: 058
     Dates: start: 202009
  2. XOLAIR [Suspect]
     Active Substance: OMALIZUMAB
  3. EMGALITY [Concomitant]
     Active Substance: GALCANEZUMAB-GNLM
  4. TALTZ [Concomitant]
     Active Substance: IXEKIZUMAB

REACTIONS (5)
  - Pruritus [Unknown]
  - Burning sensation [Unknown]
  - Pain [Unknown]
  - Psoriatic arthropathy [Unknown]
  - Psoriasis [Unknown]
